FAERS Safety Report 18520841 (Version 1)
Quarter: 2020Q4

REPORT INFORMATION
  Report Type: Spontaneous
  Country: US (occurrence: US)
  Receive Date: 20201119
  Receipt Date: 20201119
  Transmission Date: 20210114
  Serious: No
  Sender: FDA-Public Use
  Company Number: US-HIKMA PHARMACEUTICALS USA INC.-US-H14001-19-06333

PATIENT
  Sex: Female
  Weight: 81.72 kg

DRUGS (1)
  1. IPRATROPIUM [Suspect]
     Active Substance: IPRATROPIUM
     Indication: UPPER-AIRWAY COUGH SYNDROME
     Route: 045
     Dates: start: 20191217, end: 20191217

REACTIONS (2)
  - Off label use [Unknown]
  - Incorrect dose administered [Not Recovered/Not Resolved]
